FAERS Safety Report 13737664 (Version 1)
Quarter: 2017Q3

REPORT INFORMATION
  Report Type: Report from Study
  Country: US (occurrence: US)
  Receive Date: 20170710
  Receipt Date: 20170710
  Transmission Date: 20171127
  Serious: No
  Sender: FDA-Public Use
  Company Number: US-SAOL THERAPEUTICS-2016SAO00298

PATIENT
  Age: 35 Year
  Sex: Female

DRUGS (14)
  1. CLONIDINE. [Suspect]
     Active Substance: CLONIDINE
     Dosage: 34.993 ?G, \DAY
  2. BACLOFEN. [Suspect]
     Active Substance: BACLOFEN
     Route: 048
  3. BACLOFEN. [Suspect]
     Active Substance: BACLOFEN
     Indication: PAIN
     Dosage: 139.97 ?G, \DAY
     Route: 037
  4. CLONIDINE. [Suspect]
     Active Substance: CLONIDINE
     Dosage: 62.5 ?G, UNK
     Dates: start: 20160202
  5. NUCYNTA ER [Suspect]
     Active Substance: TAPENTADOL HYDROCHLORIDE
  6. BUPIVACAINE. [Suspect]
     Active Substance: BUPIVACAINE
     Dosage: 7.4186 MG, \DAY
     Route: 037
  7. NUCYNTA [Suspect]
     Active Substance: TAPENTADOL HYDROCHLORIDE
  8. DILAUDID [Suspect]
     Active Substance: HYDROMORPHONE HYDROCHLORIDE
     Dosage: 0.25 MG, \DAY
     Route: 037
     Dates: start: 20160202
  9. BUPIVACAINE. [Suspect]
     Active Substance: BUPIVACAINE
     Dosage: 5 MG, \DAY
     Route: 037
     Dates: start: 20160202
  10. TYLENOL WITH CODEINE [Suspect]
     Active Substance: ACETAMINOPHEN\CODEINE PHOSPHATE
  11. BACLOFEN. [Suspect]
     Active Substance: BACLOFEN
     Dosage: 124.99 ?G, \DAY
     Route: 037
     Dates: start: 20160202
  12. DILAUDID [Suspect]
     Active Substance: HYDROMORPHONE HYDROCHLORIDE
     Dosage: 349.93 ?G, \DAY
     Route: 037
  13. TIZANIDINE. [Suspect]
     Active Substance: TIZANIDINE
  14. HYDROCODONE [Suspect]
     Active Substance: HYDROCODONE

REACTIONS (5)
  - Dizziness [Recovered/Resolved]
  - Medical device site pain [Recovered/Resolved]
  - Agitation [Recovered/Resolved]
  - Off label use [Unknown]
  - Hypoaesthesia [Recovered/Resolved]

NARRATIVE: CASE EVENT DATE: 20160202
